FAERS Safety Report 5832645-6 (Version None)
Quarter: 2008Q3

REPORT INFORMATION
  Report Type: 
  Country: None (occurrence: None)
  Receive Date: 20080730
  Receipt Date: 20080716
  Transmission Date: 20090109
  Serious: Yes (Other)
  Sender: FDA-Public Use
  Company Number: 8034984

PATIENT
  Age: 7 Year
  Sex: Female

DRUGS (2)
  1. KEPPRA [Suspect]
  2. VALPROIC ACID [Concomitant]

REACTIONS (1)
  - THROMBOCYTOPENIA [None]
